FAERS Safety Report 4539222-8 (Version None)
Quarter: 2004Q4

REPORT INFORMATION
  Report Type: 
  Country: None (occurrence: None)
  Receive Date: 20041222
  Receipt Date: 20041213
  Transmission Date: 20050328
  Serious: Yes (Other)
  Sender: FDA-Public Use
  Company Number: 2004111566

PATIENT
  Age: 60 Year
  Sex: Male

DRUGS (2)
  1. ATORVASTATIN (ATORVASTATIN) [Suspect]
     Indication: HYPERLIPIDAEMIA
     Dosage: 20 MG (20 MG, DAILY), ORAL
     Route: 048
  2. OMEPRAZOLE [Concomitant]

REACTIONS (1)
  - TUMOUR MARKER INCREASED [None]
